FAERS Safety Report 8966410 (Version 2)
Quarter: 2013Q1

REPORT INFORMATION
  Report Type: Spontaneous
  Country: SE (occurrence: SE)
  Receive Date: 20121214
  Receipt Date: 20130114
  Transmission Date: 20140127
  Serious: Yes (Other)
  Sender: FDA-Public Use
  Company Number: SE-GLAXOSMITHKLINE-B0850726A

PATIENT
  Sex: Female
  Weight: 61 kg

DRUGS (2)
  1. SERETIDE DISKUS [Suspect]
     Indication: PULMONARY FIBROSIS
     Route: 065
  2. PREDNISOLONE [Concomitant]
     Dosage: 2.5MG PER DAY

REACTIONS (1)
  - Cardiac fibrillation [Recovered/Resolved]
